FAERS Safety Report 9135872 (Version 1)
Quarter: 2013Q1

REPORT INFORMATION
  Report Type: Spontaneous
  Country: US (occurrence: US)
  Receive Date: 20130304
  Receipt Date: 20130304
  Transmission Date: 20140127
  Serious: No
  Sender: FDA-Public Use
  Company Number: US-ABBOTT-12P-163-0975609-00

PATIENT
  Sex: Male
  Weight: 77.18 kg

DRUGS (5)
  1. ANDROGEL [Suspect]
     Indication: BLOOD TESTOSTERONE DECREASED
     Route: 061
     Dates: start: 2011, end: 20120820
  2. ANDROGEL [Suspect]
     Dosage: PACKETS
     Route: 061
     Dates: end: 2011
  3. NEUROTIN [Concomitant]
     Indication: BACK PAIN
  4. PERCOCET [Concomitant]
     Indication: PRODUCT USED FOR UNKNOWN INDICATION
     Dates: end: 201208
  5. TYLENOL [Concomitant]
     Indication: PAIN

REACTIONS (3)
  - Crying [Not Recovered/Not Resolved]
  - Affect lability [Not Recovered/Not Resolved]
  - Headache [Not Recovered/Not Resolved]
